FAERS Safety Report 4544432-X (Version None)
Quarter: 2005Q1

REPORT INFORMATION
  Report Type: 
  Country: None (occurrence: None)
  Receive Date: 20050104
  Receipt Date: 20041221
  Transmission Date: 20050727
  Serious: Yes (Other)
  Sender: FDA-Public Use
  Company Number: 23100212

PATIENT
  Sex: Male

DRUGS (2)
  1. ARGATROBAN [Suspect]
     Indication: CEREBRAL INFARCTION
     Dosage: 60 MG QD IV
     Route: 042
     Dates: start: 20041213, end: 20041214
  2. GLYCEOL [Suspect]
     Indication: CEREBRAL INFARCTION
     Route: 042
     Dates: start: 20041213

REACTIONS (4)
  - ALANINE AMINOTRANSFERASE INCREASED [None]
  - ASPARTATE AMINOTRANSFERASE INCREASED [None]
  - BLOOD LACTATE DEHYDROGENASE INCREASED [None]
  - HEPATIC FUNCTION ABNORMAL [None]
